FAERS Safety Report 12998363 (Version 1)
Quarter: 2016Q4

REPORT INFORMATION
  Report Type: Spontaneous
  Country: US (occurrence: US)
  Receive Date: 20161205
  Receipt Date: 20161205
  Transmission Date: 20170207
  Serious: No
  Sender: FDA-Public Use
  Company Number: None

PATIENT
  Age: 69 Year
  Sex: Female
  Weight: 63.56 kg

DRUGS (2)
  1. RABEPRAZOLE DR 20MG TABLETS AMNEAL [Suspect]
     Active Substance: RABEPRAZOLE SODIUM
     Indication: GASTROOESOPHAGEAL REFLUX DISEASE
     Dosage: ?          QUANTITY:\ TIGHT-U?;?
     Route: 048
     Dates: start: 20161104, end: 20161104
  2. CARAFATE [Concomitant]
     Active Substance: SUCRALFATE

REACTIONS (4)
  - Vomiting [None]
  - Tremor [None]
  - Erythema [None]
  - Feeling hot [None]

NARRATIVE: CASE EVENT DATE: 20161104
